FAERS Safety Report 8354364-7 (Version None)
Quarter: 2012Q2

REPORT INFORMATION
  Report Type: 
  Country: None (occurrence: None)
  Receive Date: 20120511
  Receipt Date: 20120507
  Transmission Date: 20120825
  Serious: Yes (Hospitalization, Other)
  Sender: FDA-Public Use
  Company Number: CA-ABBOTT-12P-028-0932467-00

PATIENT
  Sex: Female
  Weight: 36.32 kg

DRUGS (3)
  1. HUMIRA [Suspect]
     Route: 058
     Dates: start: 20120426
  2. PROBIOTIC [Concomitant]
     Indication: IMMUNE SYSTEM DISORDER
  3. HUMIRA [Suspect]
     Indication: CROHN'S DISEASE
     Route: 058
     Dates: start: 20110413, end: 20120301

REACTIONS (2)
  - CROHN'S DISEASE [None]
  - FAECAL VOMITING [None]
